FAERS Safety Report 10486640 (Version 1)
Quarter: 2014Q4

REPORT INFORMATION
  Report Type: Spontaneous
  Country: US (occurrence: US)
  Receive Date: 20141001
  Receipt Date: 20141001
  Transmission Date: 20150528
  Serious: No
  Sender: FDA-Public Use
  Company Number: US-KOWA-2014S1000870

PATIENT
  Age: 59 Year
  Sex: Male

DRUGS (10)
  1. CALCIUM + VITAMIN D [Concomitant]
     Active Substance: CALCIUM\VITAMIN D
     Route: 048
     Dates: start: 1999
  2. FISH OIL [Concomitant]
     Active Substance: FISH OIL
     Route: 048
     Dates: start: 2004
  3. ATENOLOL. [Concomitant]
     Active Substance: ATENOLOL
     Route: 048
     Dates: start: 200803
  4. LIVALO [Suspect]
     Active Substance: PITAVASTATIN CALCIUM
     Route: 048
     Dates: start: 201205
  5. BENICAR [Concomitant]
     Active Substance: OLMESARTAN MEDOXOMIL
     Route: 048
     Dates: start: 201310
  6. PLAVIX [Concomitant]
     Active Substance: CLOPIDOGREL BISULFATE
     Route: 048
     Dates: start: 200803
  7. BABY ASPIRIN [Concomitant]
     Active Substance: ASPIRIN
     Route: 048
  8. ENBREL [Concomitant]
     Active Substance: ETANERCEPT
     Dates: start: 201212
  9. AREDS 2 VITAMIN [Concomitant]
     Dates: start: 2014
  10. QUINAPRIL [Concomitant]
     Active Substance: QUINAPRIL\QUINAPRIL HYDROCHLORIDE
     Route: 048
     Dates: start: 200401

REACTIONS (3)
  - Hypoaesthesia [Not Recovered/Not Resolved]
  - Small fibre neuropathy [Not Recovered/Not Resolved]
  - Gait disturbance [Not Recovered/Not Resolved]

NARRATIVE: CASE EVENT DATE: 201205
